FAERS Safety Report 9572710 (Version 1)
Quarter: 2013Q3

REPORT INFORMATION
  Report Type: Spontaneous
  Country: US (occurrence: None)
  Receive Date: 20130930
  Receipt Date: 20130930
  Transmission Date: 20140515
  Serious: No
  Sender: FDA-Public Use
  Company Number: None

PATIENT
  Age: 57 Year
  Sex: Female

DRUGS (1)
  1. HUMIRA 40 MG ABBVIE [Suspect]
     Route: 058
     Dates: start: 20130718, end: 20130926

REACTIONS (5)
  - Migraine [None]
  - Fatigue [None]
  - Diplopia [None]
  - Pain in extremity [None]
  - Local swelling [None]
